FAERS Safety Report 8544454-8 (Version None)
Quarter: 2012Q3

REPORT INFORMATION
  Report Type: 
  Country: None (occurrence: None)
  Receive Date: 20120727
  Receipt Date: 20120717
  Transmission Date: 20120928
  Serious: Yes (Death, Disabling)
  Sender: FDA-Public Use
  Company Number: US-SANOFI-AVENTIS-2012SA050734

PATIENT
  Age: 79 Year
  Sex: Male

DRUGS (10)
  1. PLAVIX [Suspect]
  2. RESTORIL [Concomitant]
  3. FLEET ENEMA /00766901/ [Concomitant]
  4. SENOKOT /UNK/ [Concomitant]
  5. SIMVASTATIN [Concomitant]
  6. ALL OTHER THERAPEUTIC PRODUCTS [Concomitant]
  7. CELEXA [Concomitant]
  8. TEGRETOL [Concomitant]
  9. MILK OF MAGNESIA TAB [Concomitant]
  10. LOPERAMIDE [Concomitant]

REACTIONS (2)
  - BEDRIDDEN [None]
  - LUNG DISORDER [None]
